FAERS Safety Report 9963381 (Version 1)
Quarter: 2014Q1

REPORT INFORMATION
  Report Type: Report from Study
  Country: US (occurrence: US)
  Receive Date: 20140305
  Receipt Date: 20140305
  Transmission Date: 20141002
  Serious: No
  Sender: FDA-Public Use
  Company Number: US-ABBVIE-13P-163-1119680-00

PATIENT
  Age: 53 Year
  Sex: Female

DRUGS (18)
  1. HUMIRA [Suspect]
     Indication: PSORIATIC ARTHROPATHY
     Dates: start: 201305
  2. ADVAIR DISKUS [Concomitant]
     Indication: ASTHMA
     Dosage: 250/50
  3. PROAIR [Concomitant]
     Indication: ASTHMA
  4. RECLAST [Concomitant]
     Indication: OSTEOPOROSIS
  5. PROMETHAZINE [Concomitant]
     Indication: NAUSEA
  6. VITAMIN D [Concomitant]
     Indication: OSTEOPOROSIS
  7. TUMS [Concomitant]
     Indication: MINERAL SUPPLEMENTATION
     Dosage: 2 DAILY
  8. OXYCODONE [Concomitant]
     Indication: PAIN
     Dosage: 4 TIMES A DAY OR AS REQUIRED
  9. OXYCODONE [Concomitant]
     Indication: PSORIATIC ARTHROPATHY
  10. TRIAMCINOLONE [Concomitant]
     Indication: PSORIASIS
  11. MIRALAX POWDER [Concomitant]
     Indication: PHYTOTHERAPY
     Dosage: 1 CAP DAILY
  12. KLONOPIN [Concomitant]
     Indication: ANXIETY
     Dosage: 1 MG DAILY
  13. ALBUTEROL SULFATE-NEBULIZER [Concomitant]
     Indication: WHEEZING
     Dosage: AS NEEDED
  14. TRIAMTERENE [Concomitant]
     Indication: FLUID RETENTION
     Dosage: DAILY
  15. TRIAMTERENE [Concomitant]
     Indication: JOINT SWELLING
  16. RELASTORE [Concomitant]
     Indication: INTESTINAL OBSTRUCTION
     Route: 058
  17. TYLENOL [Concomitant]
     Indication: PRODUCT USED FOR UNKNOWN INDICATION
     Dosage: AS NEEDED
  18. EFFEXOR XR [Concomitant]
     Indication: ANXIETY
     Dosage: 150 MG AND 75 MG DAILY

REACTIONS (3)
  - Device malfunction [Recovered/Resolved]
  - Incorrect dose administered [Recovered/Resolved]
  - Injection site haemorrhage [Recovered/Resolved]
